FAERS Safety Report 23854287 (Version 2)
Quarter: 2024Q3

REPORT INFORMATION
  Report Type: Spontaneous
  Country: US (occurrence: US)
  Receive Date: 20240514
  Receipt Date: 20240703
  Transmission Date: 20241016
  Serious: No
  Sender: MERCK
  Company Number: US-ASTELLAS-2024US013130

PATIENT
  Sex: Male

DRUGS (2)
  1. KEYTRUDA [Suspect]
     Active Substance: PEMBROLIZUMAB
     Indication: Product used for unknown indication
     Dosage: UNK
  2. PADCEV [Suspect]
     Active Substance: ENFORTUMAB VEDOTIN-EJFV
     Indication: Product used for unknown indication
     Dosage: 1.0 MILLIGRAM/KILOGRAM
     Route: 042

REACTIONS (1)
  - Rash [Recovering/Resolving]
